FAERS Safety Report 5108331-7 (Version None)
Quarter: 2006Q3

REPORT INFORMATION
  Report Type: 
  Country: None (occurrence: None)
  Receive Date: 20060914
  Receipt Date: 20060914
  Transmission Date: 20061208
  Serious: Yes (Hospitalization)
  Sender: FDA-Public Use
  Company Number: None

PATIENT
  Age: 62 Year
  Sex: Female
  Weight: 76.2043 kg

DRUGS (1)
  1. OXYCODONE HCL [Suspect]
     Indication: OSTEOARTHRITIS
     Dosage: 40 MG TID  PO
     Route: 048
     Dates: start: 20060622, end: 20060904

REACTIONS (3)
  - DIZZINESS [None]
  - GAIT DISTURBANCE [None]
  - VOMITING [None]
